FAERS Safety Report 18214375 (Version 1)
Quarter: 2020Q3

REPORT INFORMATION
  Report Type: Report from Study
  Country: GB (occurrence: GB)
  Receive Date: 20200831
  Receipt Date: 20200831
  Transmission Date: 20201103
  Serious: Yes (Other)
  Sender: FDA-Public Use
  Company Number: GB-SAMSUNG BIOEPIS-SB-2020-26989

PATIENT
  Sex: Female

DRUGS (1)
  1. IMRALDI [Suspect]
     Active Substance: ADALIMUMAB
     Indication: RHEUMATOID ARTHRITIS
     Route: 058

REACTIONS (10)
  - Injection site erythema [Unknown]
  - Rash [Unknown]
  - Paraesthesia [Unknown]
  - Hypersensitivity [Unknown]
  - Feeling hot [Unknown]
  - Hyperhidrosis [Unknown]
  - Arthralgia [Unknown]
  - Drug ineffective [Unknown]
  - Heart rate increased [Unknown]
  - Chest discomfort [Unknown]
